FAERS Safety Report 7461551-9 (Version None)
Quarter: 2011Q2

REPORT INFORMATION
  Report Type: 
  Country: None (occurrence: None)
  Receive Date: 20110428
  Receipt Date: 20110411
  Transmission Date: 20111010
  Serious: Yes (Hospitalization)
  Sender: FDA-Public Use
  Company Number: JPI-P-014566

PATIENT
  Age: 36 Year
  Sex: Female
  Weight: 74.8435 kg

DRUGS (9)
  1. METAXALONE [Concomitant]
  2. DICLOFENAC SODIUM [Concomitant]
  3. FENOFIBRIC ACID [Concomitant]
  4. RISPERIDONE [Concomitant]
  5. HYDROCODONE BITARTRATE AND ACETAMINOPHEN [Concomitant]
  6. XYREM [Suspect]
     Indication: FIBROMYALGIA
     Dosage: 3 GM (1.5 GM, 2 IN 1 D), ORAL (TITRATING DOSE), ORAL 9 GM (4.5 GM, 2 IN 1 D), ORAL
     Route: 048
     Dates: end: 20110213
  7. XYREM [Suspect]
     Indication: FIBROMYALGIA
     Dosage: 3 GM (1.5 GM, 2 IN 1 D), ORAL (TITRATING DOSE), ORAL 9 GM (4.5 GM, 2 IN 1 D), ORAL
     Route: 048
     Dates: start: 20101029
  8. XYREM [Suspect]
     Indication: FIBROMYALGIA
     Dosage: 3 GM (1.5 GM, 2 IN 1 D), ORAL (TITRATING DOSE), ORAL 9 GM (4.5 GM, 2 IN 1 D), ORAL
     Route: 048
     Dates: start: 20080601
  9. XYREM [Suspect]
     Indication: FIBROMYALGIA
     Dosage: 3 GM (1.5 GM, 2 IN 1 D), ORAL (TITRATING DOSE), ORAL 9 GM (4.5 GM, 2 IN 1 D), ORAL
     Route: 048
     Dates: end: 20101021

REACTIONS (11)
  - PARANOIA [None]
  - ANXIETY [None]
  - NERVOUSNESS [None]
  - CONFUSIONAL STATE [None]
  - BLOOD PRESSURE INCREASED [None]
  - WEIGHT DECREASED [None]
  - INSOMNIA [None]
  - THROMBOSIS [None]
  - PAIN IN EXTREMITY [None]
  - IRRITABLE BOWEL SYNDROME [None]
  - OEDEMA PERIPHERAL [None]
